FAERS Safety Report 26139790 (Version 1)
Quarter: 2025Q4

REPORT INFORMATION
  Report Type: Spontaneous
  Country: US (occurrence: US)
  Receive Date: 20251210
  Receipt Date: 20251210
  Transmission Date: 20260118
  Serious: No
  Sender: Otter
  Company Number: US-OTTER-US-2025AST000201

PATIENT
  Sex: Female

DRUGS (2)
  1. SYMPAZAN [Suspect]
     Active Substance: CLOBAZAM
     Indication: Cerebral palsy
     Dosage: 2.5 MILLIGRAM VIA G-TUBE
     Route: 065
  2. SYMPAZAN [Suspect]
     Active Substance: CLOBAZAM
     Indication: Seizure

REACTIONS (2)
  - Drug ineffective for unapproved indication [Unknown]
  - Off label use [Unknown]
